FAERS Safety Report 24534010 (Version 1)
Quarter: 2024Q4

REPORT INFORMATION
  Report Type: Spontaneous
  Country: US (occurrence: None)
  Receive Date: 20241021
  Receipt Date: 20241021
  Transmission Date: 20250115
  Serious: No
  Sender: Public
  Company Number: None

PATIENT
  Age: 23 Year
  Sex: Female
  Weight: 54 kg

DRUGS (3)
  1. OXCARBAZEPINE [Suspect]
     Active Substance: OXCARBAZEPINE
     Indication: Complex regional pain syndrome
     Dates: start: 20240926, end: 20241011
  2. GABAPENTIN [Suspect]
     Active Substance: GABAPENTIN
  3. Claritin w/ Pseudoephedrine [Concomitant]

REACTIONS (7)
  - Somnolence [None]
  - Nausea [None]
  - Dehydration [None]
  - Dizziness [None]
  - Asthenia [None]
  - Feeling abnormal [None]
  - Drug ineffective [None]

NARRATIVE: CASE EVENT DATE: 20241010
